FAERS Safety Report 6795632-X (Version None)
Quarter: 2010Q2

REPORT INFORMATION
  Report Type: 
  Country: None (occurrence: None)
  Receive Date: 20100622
  Receipt Date: 20100608
  Transmission Date: 20101027
  Serious: Yes (Hospitalization)
  Sender: FDA-Public Use
  Company Number: DSM-2010-00867

PATIENT
  Age: 83 Year
  Sex: Male

DRUGS (6)
  1. FORZATEN (OLMESARTAN MEDOXOMIL, AMLODIPINE BESILATE) (TABLET) [Suspect]
     Indication: HYPERTENSION
     Dosage: 20/5 MG, ORAL
     Route: 048
     Dates: start: 20100101, end: 20100331
  2. DIAMIGRON (GLICLAZIDE) [Concomitant]
  3. MARCUMAR [Concomitant]
  4. EMCONCOR (BISOPROLOL) [Concomitant]
  5. PRAVASTATIN [Concomitant]
  6. LASIX [Concomitant]

REACTIONS (2)
  - ERYTHEMA [None]
  - OEDEMA PERIPHERAL [None]
